FAERS Safety Report 4385279-7 (Version None)
Quarter: 2004Q2

REPORT INFORMATION
  Report Type: 
  Country: None (occurrence: None)
  Receive Date: 20040607
  Receipt Date: 20040309
  Transmission Date: 20050107
  Serious: Yes (Other)
  Sender: FDA-Public Use
  Company Number: 361295

PATIENT
  Sex: 0

DRUGS (3)
  1. ISOTRETINOIN [Suspect]
     Dates: start: 20030515, end: 20030701
  2. ACCUTANE [Suspect]
     Dates: start: 20030315, end: 20030415
  3. ORAL CONTRACEPTIVE PILL (ORAL CONTRACEPTIVE NOS) [Concomitant]

REACTIONS (1)
  - PREGNANCY [None]
